FAERS Safety Report 10611371 (Version 5)
Quarter: 2015Q1

REPORT INFORMATION
  Report Type: Spontaneous
  Country: JP (occurrence: JP)
  Receive Date: 20141126
  Receipt Date: 20150113
  Transmission Date: 20150720
  Serious: Yes (Death, Hospitalization, Other)
  Sender: FDA-Public Use
  Company Number: JP-GLAXOSMITHKLINE-JP2014JPN020117

PATIENT
  Age: 71 Year
  Sex: Male
  Weight: 42 kg

DRUGS (5)
  1. KALIMATE [Concomitant]
     Active Substance: CALCIUM POLYSTYRENE SULFONATE
     Dosage: UNK
  2. VOTRIENT [Suspect]
     Active Substance: PAZOPANIB HYDROCHLORIDE
     Indication: METASTATIC RENAL CELL CARCINOMA
     Dosage: 600 MG, QD
     Route: 048
     Dates: start: 20141009, end: 20141101
  3. SENNOSIDE [Concomitant]
     Active Substance: SENNOSIDES
     Dosage: UNK
     Dates: start: 20141009
  4. KALIMATE [Concomitant]
     Active Substance: CALCIUM POLYSTYRENE SULFONATE
     Dosage: UNK
     Dates: start: 20141009
  5. MAGMITT [Concomitant]
     Active Substance: MAGNESIUM OXIDE
     Dosage: UNK
     Dates: start: 20141009

REACTIONS (17)
  - Pleural effusion [Unknown]
  - Decreased appetite [Unknown]
  - Duodenitis [Unknown]
  - Hepatic function abnormal [Fatal]
  - Platelet count decreased [Unknown]
  - Ascites [Unknown]
  - Hyponatraemia [Unknown]
  - Diarrhoea [Recovering/Resolving]
  - Hepatic enzyme increased [Unknown]
  - Hepatic cyst [Unknown]
  - Oesophagitis [Unknown]
  - Pain [Unknown]
  - General physical health deterioration [Unknown]
  - Gastrointestinal oedema [Unknown]
  - Drug-induced liver injury [Unknown]
  - Abdominal pain [Recovering/Resolving]
  - Oesophageal oedema [Unknown]

NARRATIVE: CASE EVENT DATE: 20141028
